FAERS Safety Report 9392653 (Version 14)
Quarter: 2018Q2

REPORT INFORMATION
  Report Type: Report from Study
  Country: BR (occurrence: BR)
  Receive Date: 20130710
  Receipt Date: 20180517
  Transmission Date: 20180711
  Serious: Yes (Death, Hospitalization, Other)
  Sender: FDA-Public Use
  Company Number: PHHY2013BR071334

PATIENT
  Age: 73 Year
  Sex: Female
  Weight: 68 kg

DRUGS (25)
  1. SANDOSTATIN LAR DEPOT [Suspect]
     Active Substance: OCTREOTIDE ACETATE
     Indication: ACROMEGALY
     Dosage: 10 MG, QMO (EVERY 28 DAYS)
     Route: 030
     Dates: start: 200601, end: 201307
  2. ADDERA D3 [Concomitant]
     Active Substance: CHOLECALCIFEROL
     Indication: VITAMIN D DEFICIENCY
     Dosage: 1 DF, QW
     Route: 048
  3. HYDREA [Concomitant]
     Active Substance: HYDROXYUREA
     Indication: RESPIRATORY GAS EXCHANGE DISORDER
     Dosage: 3 DF QD DAILY
     Route: 048
  4. SANDOSTATIN LAR DEPOT [Suspect]
     Active Substance: OCTREOTIDE ACETATE
     Dosage: 20 MG, (EVERY 40 DAYS)
     Route: 030
     Dates: start: 2017
  5. FOSAMAX PLUS D [Concomitant]
     Active Substance: ALENDRONATE SODIUM\CHOLECALCIFEROL
     Indication: PRODUCT USED FOR UNKNOWN INDICATION
     Dosage: 5600 U, QW WEEKLY
     Route: 048
  6. AGRYLIN [Concomitant]
     Active Substance: ANAGRELIDE HYDROCHLORIDE
     Indication: CYTOGENETIC ABNORMALITY
  7. SANDOSTATIN LAR DEPOT [Suspect]
     Active Substance: OCTREOTIDE ACETATE
     Dosage: 10 MG, (EVERY 40 DAYS)
     Route: 030
  8. CABERGOLINE. [Suspect]
     Active Substance: CABERGOLINE
     Indication: ACROMEGALY
     Dosage: 4 DF, PER WEEK (2 ON MON, 2 ON THU)
     Route: 065
     Dates: start: 2008, end: 2011
  9. AMLODIPINE [Concomitant]
     Active Substance: AMLODIPINE BESYLATE
     Indication: HYPERTENSION
     Dosage: 5 MG, QD
     Route: 065
  10. PURAN [Concomitant]
     Active Substance: LEVOTHYROXINE SODIUM
     Indication: THYROID HORMONE REPLACEMENT THERAPY
     Dosage: 75 UG AND 88 UG, ON ALTERNATE DAYS
     Route: 048
     Dates: start: 2009
  11. AGRYLIN [Concomitant]
     Active Substance: ANAGRELIDE HYDROCHLORIDE
     Indication: THROMBOSIS
  12. SANDOSTATIN LAR DEPOT [Suspect]
     Active Substance: OCTREOTIDE ACETATE
     Dosage: 20 MG, QMO
     Route: 030
  13. SIMVASTATIN. [Concomitant]
     Active Substance: SIMVASTATIN
     Indication: BLOOD CHOLESTEROL INCREASED
     Dosage: 1 DF, QD
     Route: 048
     Dates: start: 2005
  14. T4 [Concomitant]
     Active Substance: LEVOTHYROXINE
     Indication: THYROID DISORDER
     Route: 065
  15. AGRYLIN [Concomitant]
     Active Substance: ANAGRELIDE HYDROCHLORIDE
     Indication: PLATELET COUNT INCREASED
  16. AMLODIPINE [Concomitant]
     Active Substance: AMLODIPINE BESYLATE
     Indication: HYPERTENSION
     Dosage: 1 DF, QD
     Route: 048
  17. OMEPRAZOLE. [Concomitant]
     Active Substance: OMEPRAZOLE
     Indication: GASTRIC DISORDER
     Dosage: 20 MG, QD DAILY
     Route: 048
     Dates: start: 2006
  18. SIMVASTATIN. [Concomitant]
     Active Substance: SIMVASTATIN
     Dosage: 40 MG, UNK
     Route: 048
  19. SOMALGIN [Concomitant]
     Active Substance: ASPIRIN\DIHYDROXYALUMINUM AMINOACETATE ANHYDROUS\MAGNESIUM CARBONATE
     Indication: THROMBOSIS PROPHYLAXIS
     Dosage: 100 MG, QD
     Route: 048
  20. PURAN [Concomitant]
     Active Substance: LEVOTHYROXINE SODIUM
     Indication: HYPOTHYROIDISM
  21. HYDREA [Concomitant]
     Active Substance: HYDROXYUREA
     Indication: THROMBOSIS PROPHYLAXIS
  22. SANDOSTATIN LAR DEPOT [Suspect]
     Active Substance: OCTREOTIDE ACETATE
     Dosage: 10 MG, QMO/EVERY 28 DAYS
     Route: 030
     Dates: start: 201506
  23. DIOVAN [Concomitant]
     Active Substance: VALSARTAN
     Indication: HYPERTENSION
     Dosage: 80 MG, DAILY
     Route: 048
     Dates: start: 2007
  24. ATACAND [Concomitant]
     Active Substance: CANDESARTAN CILEXETIL
     Indication: HYPERTENSION
     Dosage: 1 DF, QD
     Route: 048
  25. AGRYLIN [Concomitant]
     Active Substance: ANAGRELIDE HYDROCHLORIDE
     Indication: PLATELET COUNT DECREASED
     Dosage: 3 DF ON ONE DAY AND 4 DF ON OTHER DAY, QD
     Route: 048
     Dates: start: 2011

REACTIONS (54)
  - Road traffic accident [Unknown]
  - Decreased appetite [Recovering/Resolving]
  - Body height decreased [Not Recovered/Not Resolved]
  - Abdominal pain [Recovered/Resolved]
  - Vomiting [Recovered/Resolved]
  - Inappropriate schedule of drug administration [Unknown]
  - Anaemia [Recovered/Resolved]
  - Thrombocytosis [Recovering/Resolving]
  - Thrombocytopenia [Recovered/Resolved]
  - Discomfort [Unknown]
  - Conjunctivitis [Recovering/Resolving]
  - Diarrhoea [Recovered/Resolved]
  - Shock haemorrhagic [Fatal]
  - Weight decreased [Recovering/Resolving]
  - Malaise [Recovered/Resolved]
  - Lower limb fracture [Unknown]
  - Rheumatic disorder [Recovering/Resolving]
  - Muscle spasms [Recovering/Resolving]
  - Tibia fracture [Unknown]
  - Hypoaesthesia [Not Recovered/Not Resolved]
  - Vertigo [Recovered/Resolved]
  - Psychiatric symptom [Unknown]
  - Foot fracture [Recovering/Resolving]
  - Weight increased [Recovering/Resolving]
  - Gastrointestinal disorder [Unknown]
  - Abdominal discomfort [Unknown]
  - Pain [Unknown]
  - Abdominal pain [Unknown]
  - Fatigue [Not Recovered/Not Resolved]
  - Asthenia [Unknown]
  - Platelet count increased [Unknown]
  - Pain [Recovered/Resolved]
  - Dizziness [Unknown]
  - Wrong technique in product usage process [Unknown]
  - Ankle fracture [Recovering/Resolving]
  - Thyroid neoplasm [Recovered/Resolved]
  - Arrhythmia [Recovered/Resolved]
  - Eye inflammation [Recovering/Resolving]
  - Peripheral swelling [Not Recovered/Not Resolved]
  - Skin disorder [Unknown]
  - Nausea [Unknown]
  - Drug intolerance [Unknown]
  - Needle issue [Unknown]
  - Carpal tunnel syndrome [Recovered/Resolved]
  - Blood disorder [Not Recovered/Not Resolved]
  - Hormone level abnormal [Unknown]
  - Carpal tunnel syndrome [Unknown]
  - Cough [Unknown]
  - Dry throat [Unknown]
  - Dysmenorrhoea [Unknown]
  - Asthenia [Recovered/Resolved]
  - Constipation [Unknown]
  - Abdominal pain upper [Recovered/Resolved]
  - Flatulence [Unknown]

NARRATIVE: CASE EVENT DATE: 2009
